FAERS Safety Report 9779757 (Version 1)
Quarter: 2013Q4

REPORT INFORMATION
  Report Type: Spontaneous
  Country: US (occurrence: US)
  Receive Date: 20131223
  Receipt Date: 20131223
  Transmission Date: 20140711
  Serious: Yes (Death)
  Sender: FDA-Public Use
  Company Number: US-GLAXOSMITHKLINE-A1054450A

PATIENT
  Sex: Male

DRUGS (1)
  1. SORIATANE [Suspect]
     Indication: PSORIASIS
     Dosage: 25MG UNKNOWN
     Route: 065
     Dates: start: 20031010

REACTIONS (2)
  - Intestinal obstruction [Fatal]
  - Colon cancer [Fatal]
